FAERS Safety Report 7351181-1 (Version None)
Quarter: 2011Q1

REPORT INFORMATION
  Report Type: 
  Country: None (occurrence: None)
  Receive Date: 20110314
  Receipt Date: 20110309
  Transmission Date: 20110831
  Serious: Yes (Other)
  Sender: FDA-Public Use
  Company Number: BR-ABBOTT-10P-020-0637942-00

PATIENT
  Sex: Male
  Weight: 112 kg

DRUGS (1)
  1. HUMIRA [Suspect]
     Indication: RHEUMATOID ARTHRITIS
     Route: 058
     Dates: start: 20061002

REACTIONS (6)
  - BLOOD GLUCOSE INCREASED [None]
  - SERUM FERRITIN INCREASED [None]
  - RED BLOOD CELL COUNT INCREASED [None]
  - DYSPNOEA [None]
  - ASTHMA [None]
  - BLOOD PRESSURE ABNORMAL [None]
